FAERS Safety Report 22873828 (Version 3)
Quarter: 2023Q4

REPORT INFORMATION
  Report Type: Spontaneous
  Country: SK (occurrence: SK)
  Receive Date: 20230828
  Receipt Date: 20231124
  Transmission Date: 20240109
  Serious: Yes (Other)
  Sender: FDA-Public Use
  Company Number: SK-TAKEDA-2023TUS083398

PATIENT
  Age: 59 Year
  Sex: Male

DRUGS (5)
  1. ENTYVIO [Suspect]
     Active Substance: VEDOLIZUMAB
     Indication: Colitis ulcerative
     Dosage: UNK
     Route: 042
     Dates: start: 20221207
  2. IMURAN [Concomitant]
     Active Substance: AZATHIOPRINE
     Dosage: UNK
  3. RIFAXIMIN [Concomitant]
     Active Substance: RIFAXIMIN
     Dosage: UNK
  4. Salofalk [Concomitant]
     Dosage: 3 MILLIGRAM
  5. PREDNISONE [Concomitant]
     Active Substance: PREDNISONE
     Indication: Hypertension
     Dosage: 5 MILLIGRAM

REACTIONS (6)
  - Diverticulitis [Unknown]
  - Abdominal pain lower [Unknown]
  - Dyschezia [Unknown]
  - Body temperature increased [Unknown]
  - Frequent bowel movements [Unknown]
  - Abdominal distension [Unknown]
